FAERS Safety Report 7933047-9 (Version None)
Quarter: 2011Q4

REPORT INFORMATION
  Report Type: 
  Country: None (occurrence: None)
  Receive Date: 20111122
  Receipt Date: 20111109
  Transmission Date: 20120403
  Serious: Yes (Hospitalization, Other)
  Sender: FDA-Public Use
  Company Number: US-ELI_LILLY_AND_COMPANY-US201101000894

PATIENT
  Age: 75 Year
  Sex: Female

DRUGS (1)
  1. FORTEO [Suspect]
     Indication: BONE DISORDER
     Dosage: UNK, DAILY (1/D)
     Route: 065
     Dates: start: 20101122

REACTIONS (4)
  - LEG AMPUTATION [None]
  - DEVICE OCCLUSION [None]
  - THROMBOSIS [None]
  - PERIPHERAL VASCULAR DISORDER [None]
